FAERS Safety Report 5103461-8 (Version None)
Quarter: 2006Q3

REPORT INFORMATION
  Report Type: 
  Country: None (occurrence: None)
  Receive Date: 20060913
  Receipt Date: 20060905
  Transmission Date: 20061208
  Serious: Yes (Death)
  Sender: FDA-Public Use
  Company Number: US-JNJFOC-20060901758

PATIENT
  Age: 48 Year
  Sex: Male

DRUGS (3)
  1. ACETAMINOPHEN [Suspect]
     Route: 048
  2. ACETAMINOPHEN [Suspect]
     Indication: SUICIDE ATTEMPT
     Route: 048
  3. DIPHENHYDRAMINE [Concomitant]

REACTIONS (4)
  - COMPLETED SUICIDE [None]
  - HEPATIC NECROSIS [None]
  - INTENTIONAL OVERDOSE [None]
  - MULTI-ORGAN FAILURE [None]
